FAERS Safety Report 8604305-X (Version None)
Quarter: 2012Q3

REPORT INFORMATION
  Report Type: 
  Country: None (occurrence: None)
  Receive Date: 20120820
  Receipt Date: 20120808
  Transmission Date: 20120928
  Serious: Yes (Hospitalization, Other)
  Sender: FDA-Public Use
  Company Number: US-JNJFOC-20120805675

PATIENT
  Sex: Female
  Weight: 63.5 kg

DRUGS (5)
  1. METHOTREXATE [Concomitant]
     Indication: RHEUMATOID ARTHRITIS
     Dosage: DOSE STRENGTH: 2.5MG
     Route: 048
  2. ALL OTHER THERAPEUTIC PRODUCTS [Concomitant]
     Route: 065
  3. CORTICOSTEROIDS (NOS) [Suspect]
     Indication: PNEUMONIA
     Route: 065
  4. REMICADE [Suspect]
     Route: 042
     Dates: start: 20120503, end: 20120503
  5. REMICADE [Suspect]
     Indication: RHEUMATOID ARTHRITIS
     Dosage: DRUG STARTED ABOUT AN YEAR FROM TIME OF REPORT
     Route: 042

REACTIONS (5)
  - PAIN [None]
  - PNEUMONIA [None]
  - PULMONARY MASS [None]
  - DEHYDRATION [None]
  - BLOOD GLUCOSE INCREASED [None]
